FAERS Safety Report 7558027-7 (Version None)
Quarter: 2011Q2

REPORT INFORMATION
  Report Type: 
  Country: None (occurrence: None)
  Receive Date: 20110613
  Receipt Date: 20110606
  Transmission Date: 20111010
  Serious: Yes (Death, Life-Threatening, Hospitalization, Other)
  Sender: FDA-Public Use
  Company Number: 2011SP026521

PATIENT
  Age: 60 Year
  Sex: Male

DRUGS (5)
  1. ASPIRIN [Suspect]
     Indication: PRODUCT USED FOR UNKNOWN INDICATION
     Dosage: 100 MG, PO
     Route: 048
     Dates: end: 20110503
  2. REMERON [Suspect]
     Indication: DEPRESSION
     Dosage: OD, PO; 45 MG, QD, PO
     Route: 048
     Dates: start: 20090301
  3. REMERON [Suspect]
     Indication: DEPRESSION
     Dosage: OD, PO; 45 MG, QD, PO
     Route: 048
     Dates: start: 20100801, end: 20110303
  4. GLUCOVANCE [Suspect]
     Indication: PRODUCT USED FOR UNKNOWN INDICATION
     Dosage: PO
     Route: 048
     Dates: end: 20110503
  5. EXFORGE [Suspect]
     Indication: PRODUCT USED FOR UNKNOWN INDICATION
     Dosage: PO
     Route: 048
     Dates: end: 20110503

REACTIONS (6)
  - CEREBELLAR ISCHAEMIA [None]
  - STRESS [None]
  - SUICIDE ATTEMPT [None]
  - DEPRESSION [None]
  - VASCULAR ENCEPHALOPATHY [None]
  - CARDIOVASCULAR DISORDER [None]
